FAERS Safety Report 14711556 (Version 2)
Quarter: 2018Q2

REPORT INFORMATION
  Report Type: Report from Study
  Country: FR (occurrence: FR)
  Receive Date: 20180403
  Receipt Date: 20180618
  Transmission Date: 20180711
  Serious: Yes (Hospitalization, Other)
  Sender: FDA-Public Use
  Company Number: FR-SA-2016SA216569

PATIENT
  Age: 88 Year
  Sex: Female

DRUGS (21)
  1. FLUOROURACIL. [Suspect]
     Active Substance: FLUOROURACIL
     Dosage: 500 MG,QCY
     Route: 040
     Dates: start: 20160414, end: 20160414
  2. ONDANSETRON [Concomitant]
     Active Substance: ONDANSETRON
     Dosage: UNK UNK,UNK
     Route: 065
     Dates: start: 20151203
  3. AFLIBERCEPT [Suspect]
     Active Substance: AFLIBERCEPT
     Indication: COLORECTAL CANCER METASTATIC
     Dosage: 240 MG,QCY
     Route: 041
     Dates: start: 20151203, end: 20151203
  4. IRINOTECAN [Suspect]
     Active Substance: IRINOTECAN
     Indication: COLORECTAL CANCER METASTATIC
     Dosage: 280 MG,QCY
     Route: 041
     Dates: start: 20151203, end: 20151203
  5. IRINOTECAN [Suspect]
     Active Substance: IRINOTECAN
     Dosage: 230 MG,QCY
     Route: 041
     Dates: start: 20160414, end: 20160414
  6. FLUOROURACIL. [Suspect]
     Active Substance: FLUOROURACIL
     Indication: COLORECTAL CANCER METASTATIC
     Dosage: 500 MG,QCY
     Route: 040
     Dates: start: 20151203, end: 20151203
  7. FLUOROURACIL. [Suspect]
     Active Substance: FLUOROURACIL
     Dosage: 3000 MG,QCY
     Route: 041
     Dates: start: 20151203
  8. FUROSEMIDE. [Concomitant]
     Active Substance: FUROSEMIDE
     Dosage: UNK UNK,UNK
     Route: 065
     Dates: start: 2015
  9. DAFALGAN [Concomitant]
     Active Substance: ACETAMINOPHEN
     Dosage: UNK UNK,UNK
     Route: 065
     Dates: start: 2015
  10. AFLIBERCEPT [Suspect]
     Active Substance: AFLIBERCEPT
     Dosage: 230 MG,QCY
     Route: 041
     Dates: start: 20160414, end: 20160414
  11. ZOPHREN [ONDANSETRON HYDROCHLORIDE] [Concomitant]
     Dosage: UNK
     Dates: start: 20151203
  12. FOLINIC ACID [Suspect]
     Active Substance: LEUCOVORIN
     Dosage: 3000 MG, QCY
     Route: 041
     Dates: start: 20151203, end: 20151203
  13. FLUOROURACIL. [Suspect]
     Active Substance: FLUOROURACIL
     Dosage: 3000 MG,QCY
     Route: 041
     Dates: start: 20160414
  14. XALATAN [Concomitant]
     Active Substance: LATANOPROST
     Dosage: UNK UNK,UNK
     Route: 065
     Dates: start: 2015
  15. FOLINIC ACID [Suspect]
     Active Substance: LEUCOVORIN
     Indication: COLORECTAL CANCER METASTATIC
     Dosage: 500 MG,QCY
     Route: 040
     Dates: start: 20151203, end: 20151203
  16. FOLINIC ACID [Suspect]
     Active Substance: LEUCOVORIN
     Dosage: 500 MG, QCY
     Route: 040
     Dates: start: 20160414, end: 20160414
  17. FOLINIC ACID [Suspect]
     Active Substance: LEUCOVORIN
     Dosage: 3000 UNK
     Route: 041
     Dates: start: 20160414, end: 20160414
  18. RAMIPRIL. [Concomitant]
     Active Substance: RAMIPRIL
     Dosage: UNK UNK,UNK
     Route: 065
     Dates: start: 2015
  19. BISOPROLOL [Concomitant]
     Active Substance: BISOPROLOL
     Dosage: UNK UNK,UNK
     Route: 065
     Dates: start: 2015
  20. ATROPINE. [Concomitant]
     Active Substance: ATROPINE
     Dosage: UNK UNK,UNK
     Route: 065
     Dates: start: 20151203
  21. LASILIX [FUROSEMIDE] [Concomitant]
     Dosage: UNK
     Dates: start: 2015

REACTIONS (1)
  - Seizure [Recovered/Resolved]

NARRATIVE: CASE EVENT DATE: 20160416
